FAERS Safety Report 20688642 (Version 1)
Quarter: 2022Q2

REPORT INFORMATION
  Report Type: Spontaneous
  Country: ES (occurrence: ES)
  Receive Date: 20220408
  Receipt Date: 20220408
  Transmission Date: 20220720
  Serious: Yes (Other)
  Sender: FDA-Public Use
  Company Number: ES-VELOXIS PHARMACEUTICALS-2022VELES-000228

PATIENT
  Age: 41 Year
  Sex: Female

DRUGS (1)
  1. TACROLIMUS [Suspect]
     Active Substance: TACROLIMUS
     Indication: Renal transplant
     Dosage: UNK UNK, UNKNOWN FREQ.
     Route: 065

REACTIONS (6)
  - Maculopathy [Recovering/Resolving]
  - Retinal deposits [Unknown]
  - Retinal ischaemia [Unknown]
  - Detachment of retinal pigment epithelium [Unknown]
  - Headache [Unknown]
  - Tremor [Unknown]
